FAERS Safety Report 13845352 (Version 2)
Quarter: 2017Q3

REPORT INFORMATION
  Report Type: Report from Study
  Country: BR (occurrence: BR)
  Receive Date: 20170808
  Receipt Date: 20170925
  Transmission Date: 20171127
  Serious: Yes (Other)
  Sender: FDA-Public Use
  Company Number: BR-SA-2017SA143694

PATIENT
  Sex: Female

DRUGS (3)
  1. LANTUS [Suspect]
     Active Substance: INSULIN GLARGINE
     Indication: TYPE 2 DIABETES MELLITUS
     Route: 051
     Dates: start: 2004
  2. HUMALOG [Concomitant]
     Active Substance: INSULIN LISPRO
     Route: 065
  3. CLIKSTAR [Suspect]
     Active Substance: CLIKSTAR
     Indication: TYPE 2 DIABETES MELLITUS
     Dates: start: 2004

REACTIONS (9)
  - Injection site abscess [Unknown]
  - Injection site haemorrhage [Unknown]
  - Thyroid disorder [Unknown]
  - Product use issue [Unknown]
  - Hypoglycaemia [Unknown]
  - Blood glucose increased [Unknown]
  - Injection site extravasation [Unknown]
  - Insulin resistance [Unknown]
  - Device issue [Unknown]

NARRATIVE: CASE EVENT DATE: 20170801
